FAERS Safety Report 5249209-8 (Version None)
Quarter: 2007Q1

REPORT INFORMATION
  Report Type: 
  Country: None (occurrence: None)
  Receive Date: 20070228
  Receipt Date: 20070222
  Transmission Date: 20070707
  Serious: Yes (Hospitalization)
  Sender: FDA-Public Use
  Company Number: US-JNJFOC-20060905189

PATIENT
  Sex: Female
  Weight: 59.88 kg

DRUGS (1)
  1. ORTHO EVRA [Suspect]
     Indication: CONTRACEPTION
     Route: 062
     Dates: start: 20030301

REACTIONS (23)
  - AORTIC ANEURYSM RUPTURE [None]
  - ATELECTASIS [None]
  - CARDIO-RESPIRATORY ARREST [None]
  - DIZZINESS [None]
  - DRUG EXPOSURE DURING PREGNANCY [None]
  - HAEMATOCRIT DECREASED [None]
  - HAEMOGLOBIN DECREASED [None]
  - HEPATIC ARTERY ANEURYSM [None]
  - HYPOTENSION [None]
  - INTRA-UTERINE DEATH [None]
  - MYDRIASIS [None]
  - OVARIAN CYST RUPTURED [None]
  - PERITONEAL HAEMORRHAGE [None]
  - PLEURAL EFFUSION [None]
  - PNEUMOTHORAX [None]
  - PREGNANCY [None]
  - RETAINED PLACENTA OR MEMBRANES [None]
  - RETROPERITONEAL HAEMATOMA [None]
  - SCAR [None]
  - SPLENIC ARTERY ANEURYSM [None]
  - SPLENIC INFARCTION [None]
  - THROMBOPHLEBITIS SUPERFICIAL [None]
  - VASCULAR PSEUDOANEURYSM [None]
